FAERS Safety Report 25216060 (Version 1)
Quarter: 2025Q2

REPORT INFORMATION
  Report Type: Spontaneous
  Country: CN (occurrence: CN)
  Receive Date: 20250418
  Receipt Date: 20250418
  Transmission Date: 20250716
  Serious: Yes (Hospitalization)
  Sender: ROCHE
  Company Number: CN-ROCHE-10000258107

PATIENT
  Age: 68 Year
  Sex: Female
  Weight: 44 kg

DRUGS (2)
  1. RITUXIMAB [Suspect]
     Active Substance: RITUXIMAB
     Indication: Lymphoma
     Route: 042
     Dates: start: 20250403
  2. 0.9% sodium chloride injection 100ml [Concomitant]
     Indication: Lymphoma
     Route: 042

REACTIONS (2)
  - Laryngeal oedema [Recovered/Resolved]
  - Chills [Recovered/Resolved]

NARRATIVE: CASE EVENT DATE: 20250403
